FAERS Safety Report 11783764 (Version 1)
Quarter: 2015Q4

REPORT INFORMATION
  Report Type: Spontaneous
  Country: US (occurrence: US)
  Receive Date: 20151127
  Receipt Date: 20151127
  Transmission Date: 20160305
  Serious: Yes (Hospitalization, Other)
  Sender: FDA-Public Use
  Company Number: US-BRISTOL-MYERS SQUIBB COMPANY-BMS-2015-080347

PATIENT
  Sex: Female

DRUGS (2)
  1. COUMADIN [Suspect]
     Active Substance: WARFARIN SODIUM
     Indication: DEEP VEIN THROMBOSIS
     Dosage: 5 MG, UNK
     Route: 048
     Dates: start: 199007
  2. COUMADIN [Suspect]
     Active Substance: WARFARIN SODIUM
     Dosage: 6 MG, UNK
     Route: 048
     Dates: start: 199007

REACTIONS (3)
  - Thrombosis [Unknown]
  - Abdominal operation [Unknown]
  - International normalised ratio abnormal [Unknown]
